FAERS Safety Report 12763117 (Version 1)
Quarter: 2016Q3

REPORT INFORMATION
  Report Type: Spontaneous
  Country: US (occurrence: US)
  Receive Date: 20160915
  Receipt Date: 20160915
  Transmission Date: 20161109
  Serious: No
  Sender: FDA-Public Use
  Company Number: None

PATIENT
  Age: 77 Year
  Sex: Female

DRUGS (1)
  1. METHOTREXATE 25MG/ML TEVA [Suspect]
     Active Substance: METHOTREXATE
     Indication: RHEUMATOID ARTHRITIS
     Dosage: 25MG/ML SDV INJECT 0.9ML SQ ONCE WEEKLY SQ
     Route: 058
     Dates: start: 20150202, end: 20160808

REACTIONS (2)
  - Cough [None]
  - Immunosuppression [None]

NARRATIVE: CASE EVENT DATE: 20160808
